FAERS Safety Report 5414453-3 (Version None)
Quarter: 2007Q3

REPORT INFORMATION
  Report Type: 
  Country: None (occurrence: None)
  Receive Date: 20070814
  Receipt Date: 20070807
  Transmission Date: 20080115
  Serious: Yes (Other)
  Sender: FDA-Public Use
  Company Number: SE-ABBOTT-03P-150-0227144-00

PATIENT
  Sex: Female

DRUGS (6)
  1. HUMIRA [Suspect]
     Indication: RHEUMATOID ARTHRITIS
     Route: 058
     Dates: start: 20021201
  2. MARVELON [Concomitant]
  3. CHLORZOXAZONE [Concomitant]
  4. DICLOFENAC [Concomitant]
  5. ETHINYL ESTRADIOL TAB [Concomitant]
  6. DESOGESTREL [Concomitant]

REACTIONS (1)
  - PULMONARY EMBOLISM [None]
